FAERS Safety Report 25131278 (Version 1)
Quarter: 2025Q1

REPORT INFORMATION
  Report Type: Spontaneous
  Country: BE (occurrence: BE)
  Receive Date: 20250327
  Receipt Date: 20250327
  Transmission Date: 20250408
  Serious: Yes (Other)
  Sender: MYLAN
  Company Number: None

PATIENT
  Sex: Female

DRUGS (3)
  1. ZOLPIDEM [Suspect]
     Active Substance: ZOLPIDEM TARTRATE
     Indication: Product used for unknown indication
  2. LORMETAZEPAM [Concomitant]
     Active Substance: LORMETAZEPAM
  3. TRAMADOL [Concomitant]
     Active Substance: TRAMADOL

REACTIONS (3)
  - Pharmaceutical nomadism [Unknown]
  - Drug abuse [Unknown]
  - Prescription form tampering [Unknown]
